FAERS Safety Report 19475178 (Version 1)
Quarter: 2021Q2

REPORT INFORMATION
  Report Type: Spontaneous
  Country: US (occurrence: US)
  Receive Date: 20210629
  Receipt Date: 20210629
  Transmission Date: 20210717
  Serious: No
  Sender: FDA-Public Use
  Company Number: US-SA-2021SA210157

PATIENT
  Sex: Female

DRUGS (21)
  1. GAMUNEX [Concomitant]
     Active Substance: HUMAN IMMUNOGLOBULIN G
  2. OMEPRAZOLE. [Concomitant]
     Active Substance: OMEPRAZOLE
  3. CYCLOBENZAPRINE HCL [Concomitant]
     Active Substance: CYCLOBENZAPRINE HYDROCHLORIDE
  4. DICYCLOMINE HCL [Concomitant]
     Active Substance: DICYCLOMINE HYDROCHLORIDE
  5. AUBAGIO [Suspect]
     Active Substance: TERIFLUNOMIDE
     Indication: MULTIPLE SCLEROSIS
     Route: 048
  6. DEXAMETHASONE. [Concomitant]
     Active Substance: DEXAMETHASONE
  7. HYDROMORPHONE HCL [Concomitant]
     Active Substance: HYDROMORPHONE HYDROCHLORIDE
  8. SODIUM CHLORIDE. [Concomitant]
     Active Substance: SODIUM CHLORIDE
  9. DEXTROSE. [Concomitant]
     Active Substance: DEXTROSE
  10. MEMANTINE HCL [Concomitant]
     Active Substance: MEMANTINE
  11. RAMELTEON [Concomitant]
     Active Substance: RAMELTEON
  12. ATENOLOL. [Concomitant]
     Active Substance: ATENOLOL
  13. EPINEPHRINE. [Concomitant]
     Active Substance: EPINEPHRINE
  14. HEPARIN [Concomitant]
     Active Substance: HEPARIN SODIUM
  15. ACETAMINOPHEN. [Concomitant]
     Active Substance: ACETAMINOPHEN
  16. OXCARBAZEPINE. [Concomitant]
     Active Substance: OXCARBAZEPINE
  17. ONDANSETRON [Concomitant]
     Active Substance: ONDANSETRON
  18. MELOXICAM. [Concomitant]
     Active Substance: MELOXICAM
  19. VITAMIN D3 [Concomitant]
     Active Substance: CHOLECALCIFEROL
  20. LYRICA [Concomitant]
     Active Substance: PREGABALIN
  21. DIPHENHYDRAMINE. [Concomitant]
     Active Substance: DIPHENHYDRAMINE

REACTIONS (1)
  - Back pain [Unknown]
